FAERS Safety Report 6812857-5 (Version None)
Quarter: 2010Q3

REPORT INFORMATION
  Report Type: 
  Country: None (occurrence: None)
  Receive Date: 20100701
  Receipt Date: 20100622
  Transmission Date: 20110219
  Serious: Yes (Other)
  Sender: FDA-Public Use
  Company Number: US-MILLENNIUM PHARMACEUTICALS, INC.-2010-03160

PATIENT
  Sex: Female

DRUGS (3)
  1. VELCADE [Suspect]
     Dosage: 2.1 MG, 1/WEEK
     Route: 042
     Dates: start: 20080902
  2. ALOXI [Concomitant]
     Indication: PRODUCT USED FOR UNKNOWN INDICATION
  3. DECADRON [Concomitant]
     Indication: PRODUCT USED FOR UNKNOWN INDICATION

REACTIONS (1)
  - BLINDNESS [None]
